FAERS Safety Report 18904199 (Version 1)
Quarter: 2021Q1

REPORT INFORMATION
  Report Type: Spontaneous
  Country: US (occurrence: US)
  Receive Date: 20210217
  Receipt Date: 20210217
  Transmission Date: 20210420
  Serious: Yes (Hospitalization)
  Sender: FDA-Public Use
  Company Number: None

PATIENT
  Age: 54 Year
  Sex: Male
  Weight: 64.4 kg

DRUGS (20)
  1. GUAIFENESIN 600MG PO Q12H [Concomitant]
     Dates: start: 20210113, end: 20210122
  2. LISPRO SSI TID + QHS [Concomitant]
     Dates: start: 20210106, end: 20210122
  3. ISOSORBIDE MONONITRATE ER 30MG PO DAILY [Concomitant]
     Dates: start: 20210111, end: 20210122
  4. TICAGRELOR 90MG PO BID [Concomitant]
     Dates: start: 20210105, end: 20210122
  5. ATORVASTATIN 40MG QHS [Concomitant]
     Dates: start: 20210105, end: 20210122
  6. BISACODYL 10MG PR Q24H [Concomitant]
     Dates: start: 20210119, end: 20210122
  7. HEPARIN 5000 UNITS Q8H [Concomitant]
     Dates: start: 20210106, end: 20210122
  8. CULTURELL 1 CAP PO DAILY [Concomitant]
     Dates: start: 20210105, end: 20210122
  9. ASPIRIN EC 81MG DAILY [Concomitant]
     Dates: start: 20210105, end: 20210122
  10. CARVEDILOL 12.5MG PO BID [Concomitant]
     Dates: start: 20210105, end: 20210122
  11. FUROSEMIDE 20MG IV ONCE [Concomitant]
     Dates: start: 20210116, end: 20210117
  12. D3 1000 UNITS, ZINC 220MG DAILY [Concomitant]
     Dates: start: 20210105, end: 20210122
  13. HYDRALAZINE 25MG PO Q8H [Concomitant]
     Dates: start: 20210112, end: 20210122
  14. POTASSIUM CHLORIDE 20MEQ PO DAILY [Concomitant]
     Dates: start: 20210109, end: 20210122
  15. REMDESIVIR. [Suspect]
     Active Substance: REMDESIVIR
     Indication: COVID-19 PNEUMONIA
     Dosage: ?          OTHER FREQUENCY:200MG X1, 100MG/D;?
     Route: 042
     Dates: start: 20210106, end: 20210110
  16. MELATONIN 3MG PO QHS PRN SLEEP [Concomitant]
     Dates: start: 20210110, end: 20210122
  17. SODIUM BICARBONATE 650MG PO Q12H [Concomitant]
     Dates: start: 20210116, end: 20210122
  18. TRAMADOL 25MG PO Q6H PRN PAIN [Concomitant]
     Dates: start: 20210105, end: 20210122
  19. DEXAMETHASONE 6MG PO Q24H [Concomitant]
     Dates: start: 20210105, end: 20210122
  20. LANTUS PER PHARMACY PROTOCOL [Concomitant]
     Dates: start: 20210106, end: 20210122

REACTIONS (5)
  - Creatinine renal clearance decreased [None]
  - Blood creatinine increased [None]
  - Hypoxia [None]
  - Oxygen saturation decreased [None]
  - Peripheral swelling [None]

NARRATIVE: CASE EVENT DATE: 20210108
